FAERS Safety Report 22087214 (Version 1)
Quarter: 2023Q1

REPORT INFORMATION
  Report Type: Report from Study
  Country: US (occurrence: US)
  Receive Date: 20230313
  Receipt Date: 20230313
  Transmission Date: 20230418
  Serious: Yes (Other)
  Sender: FDA-Public Use
  Company Number: US-ABBVIE-4335825

PATIENT
  Sex: Male

DRUGS (1)
  1. HUMIRA [Suspect]
     Active Substance: ADALIMUMAB
     Indication: Hidradenitis
     Route: 058
     Dates: start: 20220902

REACTIONS (5)
  - Cyst rupture [Unknown]
  - Diabetes mellitus [Unknown]
  - Back pain [Unknown]
  - Insomnia [Unknown]
  - Pain [Recovering/Resolving]
